FAERS Safety Report 6248804-7 (Version None)
Quarter: 2009Q2

REPORT INFORMATION
  Report Type: 
  Country: None (occurrence: None)
  Receive Date: 20090624
  Receipt Date: 20090608
  Transmission Date: 20091009
  Serious: Yes (Life-Threatening, Hospitalization)
  Sender: FDA-Public Use
  Company Number: 8047614

PATIENT
  Age: 62 Year
  Sex: Female
  Weight: 56.6 kg

DRUGS (19)
  1. CIMZIA [Suspect]
     Indication: CROHN'S DISEASE
     Dosage: 400 MG SC
     Route: 058
     Dates: start: 20090201
  2. PREDNISONE [Concomitant]
  3. ACIDOPHILUS [Concomitant]
  4. LIPRAM [Concomitant]
  5. PANCREASE MT [Concomitant]
  6. PANGESTYME CN [Concomitant]
  7. PANCRELIPASE [Concomitant]
  8. MAGNESIUM SULFATE [Concomitant]
  9. FOLIC ACID [Concomitant]
  10. POTASSIUM CHLORIDE [Concomitant]
  11. VITAMIN B-12 [Concomitant]
  12. CALTRATE +D [Concomitant]
  13. AMLODIPINE BESYLATE [Concomitant]
  14. ATENOLOL [Concomitant]
  15. NEXIUM [Concomitant]
  16. METHADONE [Concomitant]
  17. OXYCONTIN [Concomitant]
  18. MIACALCIN [Concomitant]
  19. TEMAZERAM [Concomitant]

REACTIONS (11)
  - ANOREXIA [None]
  - BLOOD MAGNESIUM DECREASED [None]
  - BLOOD POTASSIUM DECREASED [None]
  - DEHYDRATION [None]
  - DIARRHOEA [None]
  - DOCUMENTED HYPERSENSITIVITY TO ADMINISTERED DRUG [None]
  - ENDODONTIC PROCEDURE [None]
  - HAEMOGLOBIN DECREASED [None]
  - NAUSEA [None]
  - RASH [None]
  - SWELLING [None]
